FAERS Safety Report 7035266-5 (Version None)
Quarter: 2010Q4

REPORT INFORMATION
  Report Type: 
  Country: None (occurrence: None)
  Receive Date: 20101008
  Receipt Date: 20101001
  Transmission Date: 20110411
  Serious: Yes (Other)
  Sender: FDA-Public Use
  Company Number: A0884513A

PATIENT
  Age: 48 Year
  Sex: Female

DRUGS (4)
  1. LAMICTAL [Suspect]
     Indication: DEPRESSION
     Dosage: 300MG PER DAY
     Route: 048
     Dates: start: 20080101
  2. WELLBUTRIN XL [Concomitant]
  3. PROZAC [Concomitant]
  4. TOPAMAX [Concomitant]

REACTIONS (7)
  - ACCOMMODATION DISORDER [None]
  - ALTERED VISUAL DEPTH PERCEPTION [None]
  - BLEPHAROSPASM [None]
  - EYE MOVEMENT DISORDER [None]
  - VISION BLURRED [None]
  - VISUAL ACUITY REDUCED [None]
  - VISUAL IMPAIRMENT [None]
